FAERS Safety Report 7971696-2 (Version None)
Quarter: 2011Q4

REPORT INFORMATION
  Report Type: 
  Country: None (occurrence: None)
  Receive Date: 20111212
  Receipt Date: 20111129
  Transmission Date: 20120403
  Serious: Yes (Other)
  Sender: FDA-Public Use
  Company Number: US-ELI_LILLY_AND_COMPANY-US201103008816

PATIENT
  Sex: Female

DRUGS (4)
  1. FORTEO [Suspect]
     Indication: OSTEOPOROSIS
     Dosage: 20 UG, QD
     Route: 058
     Dates: start: 20110220
  2. FORTEO [Suspect]
     Dosage: 20 UG, QD
     Route: 058
  3. FORTEO [Suspect]
     Dosage: 20 UG, QD
     Route: 058
  4. FORTEO [Suspect]
     Dosage: 20 UG, QD
     Route: 058

REACTIONS (16)
  - DECREASED APPETITE [None]
  - SPIDER VEIN [None]
  - THERAPEUTIC PROCEDURE [None]
  - CONTUSION [None]
  - HEAD INJURY [None]
  - ARTHRALGIA [None]
  - WEIGHT DECREASED [None]
  - RESPIRATORY TRACT INFECTION [None]
  - OEDEMA PERIPHERAL [None]
  - FALL [None]
  - VASCULAR INJURY [None]
  - MASS [None]
  - DIZZINESS POSTURAL [None]
  - INJECTION SITE HAEMATOMA [None]
  - MUSCULOSKELETAL CHEST PAIN [None]
  - BREAST PAIN [None]
